FAERS Safety Report 5927047-8 (Version None)
Quarter: 2008Q4

REPORT INFORMATION
  Report Type: 
  Country: None (occurrence: None)
  Receive Date: 20081022
  Receipt Date: 20081016
  Transmission Date: 20090506
  Serious: Yes (Life-Threatening, Hospitalization)
  Sender: FDA-Public Use
  Company Number: PHHY2008GB25374

PATIENT
  Sex: Female

DRUGS (1)
  1. CLOZARIL [Suspect]
     Indication: SCHIZOPHRENIA
     Dosage: UNK
     Dates: end: 20081015

REACTIONS (5)
  - DRUG LEVEL CHANGED [None]
  - INCONTINENCE [None]
  - INFECTION [None]
  - SKIN DISCOLOURATION [None]
  - TACHYCARDIA [None]
